FAERS Safety Report 10166856 (Version 1)
Quarter: 2014Q2

REPORT INFORMATION
  Report Type: Spontaneous
  Country: GB (occurrence: None)
  Receive Date: 20140508
  Receipt Date: 20140508
  Transmission Date: 20141212
  Serious: Yes (Other)
  Sender: FDA-Public Use
  Company Number: AUR-APL-2014-05282

PATIENT
  Age: 34 Year
  Sex: Female

DRUGS (2)
  1. AMOXICILLIN+CLAVULANIC ACID (CLAVULANIC ACID, AMOXICILLIN) [Suspect]
     Indication: VAGINAL INFECTION
     Dates: start: 20140414
  2. METRONIDAZOLE [Concomitant]

REACTIONS (5)
  - Dyspnoea [None]
  - Influenza like illness [None]
  - Haematochezia [None]
  - Abdominal pain [None]
  - Hypersensitivity [None]
